FAERS Safety Report 8759592 (Version 2)
Quarter: 2012Q4

REPORT INFORMATION
  Report Type: 
  Country: US (occurrence: US)
  Receive Date: 20120829
  Receipt Date: 20121010
  Transmission Date: 20130627
  Serious: Yes (Death, Life-Threatening, Hospitalization)
  Sender: FDA-Public Use
  Company Number: US-ACTELION-A-NJ2012-70359

PATIENT
  Age: 64 Year
  Sex: Female

DRUGS (3)
  1. TRACLEER [Suspect]
     Indication: PULMONARY ARTERIAL HYPERTENSION
     Dosage: 62.5 mg, bid
     Route: 048
     Dates: start: 201206, end: 20120817
  2. VENTAVIS [Suspect]
     Indication: PULMONARY ARTERIAL HYPERTENSION
     Dosage: 5 ?g, 6x daily
     Route: 055
     Dates: start: 20120717, end: 201208
  3. FLOLAN [Concomitant]

REACTIONS (2)
  - Respiratory distress [Fatal]
  - Hypoxia [Unknown]
